FAERS Safety Report 13914028 (Version 1)
Quarter: 2017Q3

REPORT INFORMATION
  Report Type: Spontaneous
  Country: US (occurrence: US)
  Receive Date: 20170828
  Receipt Date: 20170828
  Transmission Date: 20171127
  Serious: No
  Sender: FDA-Public Use
  Company Number: US-ROCHE-1141041

PATIENT
  Sex: Female
  Weight: 87.36 kg

DRUGS (4)
  1. TAMOXIFEN [Concomitant]
     Active Substance: TAMOXIFEN
  2. NUTROPIN AQ [Suspect]
     Active Substance: SOMATROPIN
     Indication: HYPOPITUITARISM
     Dosage: 1.125 MG/INJECTION
     Route: 058
     Dates: start: 19970318
  3. NEURONTIN [Concomitant]
     Active Substance: GABAPENTIN
  4. SYNTHROID [Concomitant]
     Active Substance: LEVOTHYROXINE SODIUM

REACTIONS (10)
  - Polyuria [Unknown]
  - Fatigue [Unknown]
  - Arthritis [Unknown]
  - Muscular weakness [Unknown]
  - Sleep disorder [Unknown]
  - Neuropathy peripheral [Unknown]
  - Nocturia [Unknown]
  - Polydipsia [Unknown]
  - Depression [Unknown]
  - Asthenia [Unknown]
